FAERS Safety Report 5565814-3 (Version None)
Quarter: 2007Q4

REPORT INFORMATION
  Report Type: 
  Country: None (occurrence: None)
  Receive Date: 20071213
  Receipt Date: 20071130
  Transmission Date: 20080405
  Serious: Yes (Hospitalization)
  Sender: FDA-Public Use
  Company Number: E2020-01095-SPO-US

PATIENT
  Age: 92 Year
  Sex: Female

DRUGS (11)
  1. ARICEPT [Suspect]
     Indication: DEMENTIA
     Dosage: 5 MG, 1 IN 1 D, ORAL
     Route: 048
     Dates: start: 20050711, end: 20050701
  2. SEROQUEL [Concomitant]
  3. NAMENDA [Concomitant]
  4. RIMERON (MIRTAZAPINE) [Concomitant]
  5. NITROFURANTOIN [Concomitant]
  6. METFORMIN (METFORMIN) [Concomitant]
  7. DIGOXIN [Concomitant]
  8. LISINOPRIL [Concomitant]
  9. FUROSEMIDE [Concomitant]
  10. PEPCID [Concomitant]
  11. TRUSOPT [Concomitant]

REACTIONS (11)
  - BLOOD SODIUM DECREASED [None]
  - CANDIDIASIS [None]
  - CARDIAC FAILURE CONGESTIVE [None]
  - CARDIOMEGALY [None]
  - DECUBITUS ULCER [None]
  - FRACTURE [None]
  - HAEMATOCRIT DECREASED [None]
  - PLATELET COUNT INCREASED [None]
  - PNEUMONIA ASPIRATION [None]
  - SEPSIS [None]
  - WHITE BLOOD CELL COUNT INCREASED [None]
